FAERS Safety Report 9253384 (Version 4)
Quarter: 2014Q1

REPORT INFORMATION
  Report Type: Spontaneous
  Country: US (occurrence: US)
  Receive Date: 20130425
  Receipt Date: 20140122
  Transmission Date: 20141002
  Serious: Yes (Hospitalization, Disabling, Other)
  Sender: FDA-Public Use
  Company Number: US-ASTRAZENECA-2013SE27258

PATIENT
  Age: 54 Year
  Sex: Female
  Weight: 163.3 kg

DRUGS (22)
  1. NEXIUM [Suspect]
     Indication: ULCER
     Dosage: 2 TIMES MORNING AND NIGHT,50 PACKS ARE LESS
     Route: 048
     Dates: start: 1998
  2. NEXIUM [Suspect]
     Indication: ULCER
     Route: 048
     Dates: start: 1999, end: 2013
  3. NEXIUM [Suspect]
     Indication: ULCER
     Route: 048
     Dates: start: 20050520
  4. PRILOSEC [Suspect]
     Route: 048
  5. PRILOSEC [Suspect]
     Route: 048
     Dates: start: 1997, end: 1999
  6. PRILOSEC [Suspect]
     Dosage: 10/5 MG 4 TIMES A DAY (OMEPRAZOLE)
     Route: 048
     Dates: start: 2013
  7. PREVACID [Suspect]
     Indication: ULCER
     Route: 065
  8. PREVACID [Suspect]
     Indication: ULCER
     Route: 065
     Dates: start: 1996, end: 2013
  9. ZANTAC [Concomitant]
     Dates: start: 2001, end: 2002
  10. MILK MAGNESIA [Concomitant]
     Dosage: 30 ML TO 2 1/2 TABLE SPOON 3 TIMES A DAY
     Dates: start: 2005
  11. ALKA SELTZER [Concomitant]
     Dates: start: 2013
  12. TUMS [Concomitant]
  13. TAGAMET [Concomitant]
     Dates: start: 2001, end: 2002
  14. PEPCID [Concomitant]
  15. CLONIDINE [Concomitant]
  16. LAMISIL [Concomitant]
  17. LASIX [Concomitant]
  18. ALPRAZOLAM [Concomitant]
     Indication: ANXIETY
     Dates: start: 20120705
  19. ALPRAZOLAM [Concomitant]
     Indication: ANXIETY
     Route: 048
     Dates: start: 20100210
  20. HYDROCODE [Concomitant]
     Dates: start: 20120705
  21. SULFAMETH/TRIMETHOPR [Concomitant]
     Dosage: 800/160 MG, TAKES ONE TABLET TWO TIMES DAILY
     Dates: start: 20100520
  22. POTASSIUM CHLORIDE [Concomitant]

REACTIONS (19)
  - Fall [Unknown]
  - Pelvic fracture [Unknown]
  - Type 2 diabetes mellitus [Unknown]
  - Foot fracture [Unknown]
  - Lower limb fracture [Unknown]
  - Back disorder [Unknown]
  - Multiple fractures [Unknown]
  - Myocardial infarction [Unknown]
  - Cardiac disorder [Unknown]
  - Osteoporosis [Unknown]
  - Bone disorder [Unknown]
  - Gait disturbance [Unknown]
  - Rheumatoid arthritis [Unknown]
  - Arthritis [Unknown]
  - Insomnia [Unknown]
  - Osteopenia [Unknown]
  - Osteoarthritis [Unknown]
  - Exostosis [Unknown]
  - Depression [Unknown]
